FAERS Safety Report 9496190 (Version 2)
Quarter: 2013Q3

REPORT INFORMATION
  Report Type: Spontaneous
  Country: NO (occurrence: None)
  Receive Date: 20130829
  Receipt Date: 20130916
  Transmission Date: 20140515
  Serious: Yes (Hospitalization, Other)
  Sender: FDA-Public Use
  Company Number: 2013DEPNO00018

PATIENT
  Sex: 0

DRUGS (5)
  1. DEPOCYT(E) (CYTARABINE) LIPOSOME INJECTABLE SUSPENSION [Suspect]
     Indication: PRODUCT USED FOR UNKNOWN INDICATION
  2. CYCLOPHOSPHAMIDE (CYCLOPHOSPHAMIDE) [Suspect]
     Indication: PRODUCT USED FOR UNKNOWN INDICATION
  3. DOXORUBICINE [Suspect]
     Indication: PRODUCT USED FOR UNKNOWN INDICATION
  4. ETOPOSIDE (ETOPOSIDE PHOSPHATE) [Suspect]
     Indication: PRODUCT USED FOR UNKNOWN INDICATION
  5. CYTARABINE (CYTARABINE) [Suspect]
     Indication: PRODUCT USED FOR UNKNOWN INDICATION

REACTIONS (3)
  - Bradycardia [None]
  - Nausea [None]
  - Thrombocytopenia [None]
